FAERS Safety Report 9172085 (Version 1)
Quarter: 2013Q1

REPORT INFORMATION
  Report Type: Spontaneous
  Country: US (occurrence: US)
  Receive Date: 20130319
  Receipt Date: 20130319
  Transmission Date: 20140127
  Serious: No
  Sender: FDA-Public Use
  Company Number: US-009507513-1303USA007317

PATIENT
  Sex: Female

DRUGS (1)
  1. NASONEX [Suspect]
     Indication: EUSTACHIAN TUBE DISORDER
     Dosage: UNK
     Route: 045

REACTIONS (3)
  - Drug ineffective [Unknown]
  - Off label use [Unknown]
  - Product quality issue [Unknown]
